FAERS Safety Report 21515035 (Version 1)
Quarter: 2022Q4

REPORT INFORMATION
  Report Type: Spontaneous
  Country: US (occurrence: US)
  Receive Date: 20221027
  Receipt Date: 20221027
  Transmission Date: 20230113
  Serious: No
  Sender: FDA-Public Use
  Company Number: US-UPSHER-SMITH LABORATORIES, LLC-2022USL00220

PATIENT
  Sex: Female
  Weight: 24.49 kg

DRUGS (7)
  1. JANTOVEN [Suspect]
     Active Substance: WARFARIN SODIUM
  2. TADALAFIL [Suspect]
     Active Substance: TADALAFIL
  3. XELJANZ [Suspect]
     Active Substance: TOFACITINIB CITRATE
     Dosage: UNK
  4. AMBRISENTAN [Suspect]
     Active Substance: AMBRISENTAN
  5. REMODULIN [Concomitant]
     Active Substance: TREPROSTINIL
     Dosage: 0.049 ?G/KG, CONTINUING IV DRIP
     Route: 041
     Dates: start: 20170605
  6. REMODULIN [Concomitant]
     Active Substance: TREPROSTINIL
     Dosage: 0.049 ?G/KG, CONTINUOUS
     Route: 041
  7. EPOPROSTENOL SODIUM [Concomitant]
     Active Substance: EPOPROSTENOL SODIUM

REACTIONS (2)
  - Drug ineffective [Unknown]
  - Extra dose administered [Unknown]
